FAERS Safety Report 8206247-0 (Version None)
Quarter: 2012Q1

REPORT INFORMATION
  Report Type: 
  Country: None (occurrence: None)
  Receive Date: 20120313
  Receipt Date: 20120309
  Transmission Date: 20120608
  Serious: Yes (Hospitalization)
  Sender: FDA-Public Use
  Company Number: PHHY2012HU021101

PATIENT
  Age: 61 Year
  Sex: Female

DRUGS (5)
  1. ZOLEDRONOC ACID [Suspect]
     Dosage: 5 MGYEARLY
     Route: 042
     Dates: start: 20110901
  2. VITAMIN D [Concomitant]
  3. ZOLEDRONOC ACID [Suspect]
     Indication: OSTEOPOROSIS
     Dosage: 5 MGYEARLY
     Route: 042
  4. ZOLEDRONOC ACID [Suspect]
     Dosage: 5 MGYEARLY
     Route: 042
  5. CALCIUM [Concomitant]

REACTIONS (1)
  - OSTEONECROSIS OF JAW [None]
